FAERS Safety Report 7489966-3 (Version None)
Quarter: 2011Q2

REPORT INFORMATION
  Report Type: 
  Country: None (occurrence: None)
  Receive Date: 20110519
  Receipt Date: 20110509
  Transmission Date: 20111010
  Serious: Yes (Hospitalization)
  Sender: FDA-Public Use
  Company Number: US-BAYER-201024982NA

PATIENT
  Age: 36 Year
  Sex: Female
  Weight: 53.515 kg

DRUGS (1)
  1. YASMIN [Suspect]
     Indication: ORAL CONTRACEPTION
     Route: 048
     Dates: start: 20030601, end: 20040201

REACTIONS (3)
  - PULMONARY EMBOLISM [None]
  - CHEST PAIN [None]
  - LIMB DISCOMFORT [None]
